FAERS Safety Report 8250352-X (Version None)
Quarter: 2012Q1

REPORT INFORMATION
  Report Type: 
  Country: None (occurrence: None)
  Receive Date: 20120319
  Receipt Date: 20100916
  Transmission Date: 20120608
  Serious: Yes (Other)
  Sender: FDA-Public Use
  Company Number: PHHY2010US63337

PATIENT
  Age: 71 Year
  Sex: Female

DRUGS (11)
  1. NEXIUM [Concomitant]
  2. ACTOS (PIOGLITAZONE, PIOGLITAZONE HYDROCHLORIDE) [Concomitant]
  3. AMBIEN [Concomitant]
  4. AVALIDE [Concomitant]
  5. LEXAPRO [Concomitant]
  6. JANUVIA [Concomitant]
  7. VERAPAMIL [Concomitant]
  8. TEKTURNA HCT [Suspect]
     Dates: start: 20100823
  9. HYDROCODONE BITARTRATE [Concomitant]
  10. ACETAMINOPHEN [Concomitant]
  11. ALPRAZOLAM [Concomitant]

REACTIONS (8)
  - VISUAL IMPAIRMENT [None]
  - HYPOTENSION [None]
  - FATIGUE [None]
  - INFLUENZA LIKE ILLNESS [None]
  - INSOMNIA [None]
  - BACK PAIN [None]
  - GAIT DISTURBANCE [None]
  - DIZZINESS [None]
